FAERS Safety Report 12952986 (Version 1)
Quarter: 2016Q4

REPORT INFORMATION
  Report Type: Report from Study
  Country: US (occurrence: US)
  Receive Date: 20161117
  Receipt Date: 20161117
  Transmission Date: 20170207
  Serious: No
  Sender: FDA-Public Use
  Company Number: US-AMGEN-USASL2016157538

PATIENT
  Age: 63 Year
  Sex: Female

DRUGS (5)
  1. ZETIA [Concomitant]
     Active Substance: EZETIMIBE
     Indication: LIVER DISORDER
     Dosage: UNK
  2. ZETIA [Concomitant]
     Active Substance: EZETIMIBE
     Indication: HYPERLIPIDAEMIA
  3. ENBREL [Suspect]
     Active Substance: ETANERCEPT
     Indication: PSORIASIS
     Dosage: 50 MG, QWK
     Route: 065
  4. WELCHOL [Concomitant]
     Active Substance: COLESEVELAM HYDROCHLORIDE
     Indication: HYPERLIPIDAEMIA
  5. WELCHOL [Concomitant]
     Active Substance: COLESEVELAM HYDROCHLORIDE
     Indication: LIVER DISORDER
     Dosage: UNK

REACTIONS (4)
  - Periodontal disease [Unknown]
  - Blood cholesterol increased [Unknown]
  - Pain in jaw [Unknown]
  - Toothache [Unknown]
